FAERS Safety Report 17582569 (Version 1)
Quarter: 2020Q1

REPORT INFORMATION
  Report Type: Spontaneous
  Country: US (occurrence: US)
  Receive Date: 20200325
  Receipt Date: 20200325
  Transmission Date: 20200409
  Serious: Yes (Hospitalization, Other)
  Sender: FDA-Public Use
  Company Number: US-GILEAD-2020-0456597

PATIENT
  Age: 49 Year
  Sex: Male

DRUGS (1)
  1. RANEXA [Suspect]
     Active Substance: RANOLAZINE
     Indication: ANGINA PECTORIS
     Dosage: UNK
     Route: 065
     Dates: end: 2020

REACTIONS (4)
  - Feeding tube user [Unknown]
  - Neoplasm malignant [Not Recovered/Not Resolved]
  - Laryngectomy [Unknown]
  - Angina pectoris [Not Recovered/Not Resolved]
